FAERS Safety Report 11789708 (Version 1)
Quarter: 2015Q4

REPORT INFORMATION
  Report Type: Spontaneous
  Country: US (occurrence: US)
  Receive Date: 20151201
  Receipt Date: 20151201
  Transmission Date: 20160305
  Serious: Yes (Life-Threatening, Hospitalization)
  Sender: FDA-Public Use
  Company Number: US-DYAX CORP.-2015DX000480

PATIENT
  Age: 35 Year
  Sex: Female
  Weight: 123.94 kg

DRUGS (4)
  1. FIRAZYR [Concomitant]
     Active Substance: ICATIBANT ACETATE
     Indication: PRODUCT USED FOR UNKNOWN INDICATION
     Route: 065
  2. KALBITOR [Suspect]
     Active Substance: ECALLANTIDE
     Indication: STRIDOR
     Route: 058
     Dates: start: 20151111, end: 20151112
  3. KALBITOR [Suspect]
     Active Substance: ECALLANTIDE
     Indication: HEREDITARY ANGIOEDEMA
     Route: 058
  4. KALBITOR [Suspect]
     Active Substance: ECALLANTIDE
     Route: 058

REACTIONS (3)
  - Hereditary angioedema [Recovered/Resolved]
  - Off label use [Unknown]
  - Stridor [Unknown]

NARRATIVE: CASE EVENT DATE: 20151108
